FAERS Safety Report 19275410 (Version 6)
Quarter: 2022Q1

REPORT INFORMATION
  Report Type: Report from Study
  Country: US (occurrence: US)
  Receive Date: 20210519
  Receipt Date: 20220225
  Transmission Date: 20220424
  Serious: Yes (Hospitalization, Other)
  Sender: FDA-Public Use
  Company Number: US-TAKEDA-US201911099

PATIENT
  Sex: Female

DRUGS (3)
  1. HUMAN IMMUNOGLOBULIN G [Suspect]
     Active Substance: HUMAN IMMUNOGLOBULIN G
     Indication: Primary immunodeficiency syndrome
     Dosage: UNK
     Route: 058
  2. GAMMAGARD LIQUID [Suspect]
     Active Substance: HUMAN IMMUNOGLOBULIN G
     Indication: Primary immunodeficiency syndrome
     Dosage: UNK
     Route: 042
  3. COVID-19 VACCINE NOS [Suspect]
     Active Substance: COVID-19 VACCINE NOS
     Indication: Product used for unknown indication
     Dosage: UNK
     Route: 065

REACTIONS (12)
  - Dehydration [Unknown]
  - Urinary tract infection [Recovering/Resolving]
  - COVID-19 [Recovering/Resolving]
  - Pharyngitis streptococcal [Recovering/Resolving]
  - Surgery [Recovering/Resolving]
  - Weight decreased [Unknown]
  - Pharyngitis [Unknown]
  - Eye infection [Unknown]
  - Torticollis [Unknown]
  - Vein collapse [Unknown]
  - Depression [Unknown]
  - Arthralgia [Unknown]
